FAERS Safety Report 7674878 (Version 3)
Quarter: 2013Q1

REPORT INFORMATION
  Report Type: Spontaneous
  Country: IE (occurrence: IE)
  Receive Date: 20101118
  Receipt Date: 20130220
  Transmission Date: 20140127
  Serious: Yes (Hospitalization, Other)
  Sender: FDA-Public Use
  Company Number: IE-RB-012650-10

PATIENT
  Age: 35 Year
  Sex: Female

DRUGS (9)
  1. SUBOXONE [Suspect]
     Indication: DRUG DEPENDENCE
     Route: 060
     Dates: start: 20100702
  2. BISOPROLOL [Suspect]
     Indication: LONG QT SYNDROME CONGENITAL
     Dosage: DOSAGE DETAILS UNKNOWN
     Route: 048
  3. ZOLPIDEM [Suspect]
     Indication: INSOMNIA
     Dosage: AT NIGHT
     Route: 048
     Dates: start: 20100414
  4. ALPRAZOLAM [Suspect]
     Indication: ANXIETY
     Route: 048
     Dates: start: 2009
  5. ABACAVIR [Suspect]
     Indication: HIV TEST POSITIVE
     Route: 048
     Dates: start: 200909
  6. LAMIVUDINE [Suspect]
     Indication: HIV TEST POSITIVE
     Route: 048
     Dates: start: 200909
  7. MARAVIROC [Suspect]
     Indication: HIV TEST POSITIVE
     Route: 048
  8. TENOFOVIR [Suspect]
     Indication: HIV TEST POSITIVE
     Route: 048
  9. CO-TRIMOXAZOLE [Suspect]
     Indication: PROPHYLAXIS
     Route: 048

REACTIONS (5)
  - Exposure during pregnancy [Recovered/Resolved]
  - Abortion spontaneous [Recovered/Resolved]
  - Vaginal haemorrhage [Recovered/Resolved]
  - Abdominal pain [Recovered/Resolved]
  - Retained products of conception [Recovered/Resolved]
